FAERS Safety Report 17191286 (Version 3)
Quarter: 2020Q1

REPORT INFORMATION
  Report Type: Spontaneous
  Country: GB (occurrence: GB)
  Receive Date: 20191223
  Receipt Date: 20200227
  Transmission Date: 20200409
  Serious: Yes (Hospitalization, Other)
  Sender: FDA-Public Use
  Company Number: GB-BRISTOL-MYERS SQUIBB COMPANY-BMS-2019-121020

PATIENT
  Age: 70 Year
  Sex: Female

DRUGS (6)
  1. KENALOG [Suspect]
     Active Substance: TRIAMCINOLONE ACETONIDE
     Indication: BURSITIS
     Dosage: 40 MILLIGRAM
     Route: 065
     Dates: start: 20190511, end: 20190511
  2. KENALOG [Suspect]
     Active Substance: TRIAMCINOLONE ACETONIDE
     Indication: ROTATOR CUFF SYNDROME
     Route: 065
  3. HYLO-FORTE [Concomitant]
     Active Substance: HYALURONATE SODIUM
     Indication: PRODUCT USED FOR UNKNOWN INDICATION
     Dosage: UNK
     Route: 065
  4. SERETIDE [Concomitant]
     Active Substance: FLUTICASONE PROPIONATE\SALMETEROL XINAFOATE
     Indication: PRODUCT USED FOR UNKNOWN INDICATION
     Dosage: UNK UNK, BID
  5. CHIROCAINE [Concomitant]
     Active Substance: LEVOBUPIVACAINE HYDROCHLORIDE
     Indication: PRODUCT USED FOR UNKNOWN INDICATION
     Dosage: UNK
     Route: 065
  6. PARACETAMOL [Concomitant]
     Active Substance: ACETAMINOPHEN
     Indication: PRODUCT USED FOR UNKNOWN INDICATION
     Dosage: 500 MILLIGRAM, TID
     Route: 065

REACTIONS (19)
  - Palpitations [Unknown]
  - Body temperature increased [Unknown]
  - Joint range of motion decreased [Unknown]
  - Nausea [Unknown]
  - Rash [Unknown]
  - Musculoskeletal pain [Unknown]
  - Product quality issue [Unknown]
  - Neck pain [Unknown]
  - Inflammation [Unknown]
  - Flushing [Unknown]
  - Rotator cuff syndrome [Unknown]
  - Malaise [Unknown]
  - Arthralgia [Unknown]
  - Chest discomfort [Unknown]
  - Drug ineffective [Unknown]
  - Fatigue [Unknown]
  - Muscle spasms [Unknown]
  - Wheezing [Unknown]
  - Arthritis [Unknown]

NARRATIVE: CASE EVENT DATE: 20190511
